FAERS Safety Report 21674812 (Version 3)
Quarter: 2022Q4

REPORT INFORMATION
  Report Type: Spontaneous
  Country: US (occurrence: US)
  Receive Date: 20221202
  Receipt Date: 20221212
  Transmission Date: 20230113
  Serious: Yes (Hospitalization)
  Sender: FDA-Public Use
  Company Number: US-SA-SAC20221201001156

PATIENT
  Age: 65 Year
  Sex: Male

DRUGS (2)
  1. ELOCTATE [Suspect]
     Active Substance: EFMOROCTOCOG ALFA
     Dosage: 5000 U (+/-10%)
     Route: 065
  2. ELOCTATE [Suspect]
     Active Substance: EFMOROCTOCOG ALFA
     Dosage: 6700 IU
     Route: 042

REACTIONS (4)
  - Shoulder operation [Unknown]
  - Pain [Unknown]
  - Burning sensation [Unknown]
  - Oedema [Unknown]

NARRATIVE: CASE EVENT DATE: 20221127
